FAERS Safety Report 5370306-0 (Version None)
Quarter: 2007Q2

REPORT INFORMATION
  Report Type: 
  Country: None (occurrence: None)
  Receive Date: 20070626
  Receipt Date: 20070614
  Transmission Date: 20071010
  Serious: Yes (Other)
  Sender: FDA-Public Use
  Company Number: JP-ROCHE-503274

PATIENT
  Age: 67 Year
  Sex: Male

DRUGS (9)
  1. INTERFERON ALFA-2A [Suspect]
     Route: 065
  2. INTERFERON ALFA-2A [Suspect]
     Dosage: IN SOME PATIENTS, IT WAS CONTINUED FOR 48 WEEKS.
     Route: 065
  3. RIBAVIRIN [Suspect]
     Dosage: 600 MG DAILY FOR PATIENTS WHO WEIGHED 60 KG OR LESS, 800 MG FOR PATIENTS WHO WEIGHED MORE THAN 60 K+
     Route: 048
  4. INTERFERON ALFA (NON-ROCHE) [Suspect]
     Dosage: REPORTED AS NATURAL INTERFERON ALFA.
     Route: 065
  5. INTERFERON ALFA (NON-ROCHE) [Suspect]
     Dosage: IN SOME PATIENTS, IT WAS CONTINUED FOR 48 WEEKS.
     Route: 065
  6. INTERFERON ALFA-2B [Suspect]
     Route: 065
  7. INTERFERON ALFA-2B [Suspect]
     Dosage: IN SOME PATIENTS, IT WAS CONTINUED FOR 48 WEEKS.
     Route: 065
  8. INTERFERON BETA [Suspect]
     Route: 065
  9. INTERFERON BETA [Suspect]
     Dosage: IN SOME PATIENTS, IT WAS CONTINUED FOR 48 WEEKS.
     Route: 065

REACTIONS (1)
  - HEPATIC NEOPLASM MALIGNANT [None]
